FAERS Safety Report 8799442 (Version 1)
Quarter: 2012Q4

REPORT INFORMATION
  Report Type: 
  Country: US (occurrence: US)
  Receive Date: 20120919
  Receipt Date: 20120919
  Transmission Date: 20130627
  Serious: Yes (Other)
  Sender: FDA-Public Use
  Company Number: PHEH2012US017905

PATIENT
  Sex: Male

DRUGS (3)
  1. DIOVAN HCT [Suspect]
     Indication: BLOOD PRESSURE
     Dosage: 1 DF(320mg Vals + 12.5mg HCTZ), QD
     Route: 048
  2. GLYBURIDE METFORMIN [Concomitant]
     Indication: DIABETES MELLITUS
     Dosage: 550 mg, BID
     Route: 048
  3. SIMVASTATIN [Concomitant]
     Indication: BLOOD CHOLESTEROL
     Dosage: 40 mg, QD
     Route: 048

REACTIONS (3)
  - Chronic inflammatory demyelinating polyradiculoneuropathy [Unknown]
  - Condition aggravated [Unknown]
  - Product blister packaging issue [None]
